FAERS Safety Report 5508249-1 (Version None)
Quarter: 2007Q4

REPORT INFORMATION
  Report Type: 
  Country: None (occurrence: None)
  Receive Date: 20071106
  Receipt Date: 20070420
  Transmission Date: 20080405
  Serious: No
  Sender: FDA-Public Use
  Company Number: A0643629A

PATIENT
  Age: 5 Year
  Sex: Male
  Weight: 21.8 kg

DRUGS (1)
  1. AMOXICILLIN [Suspect]
     Indication: EAR INFECTION
     Dosage: 30CC TWICE PER DAY
     Route: 048

REACTIONS (2)
  - ACCIDENTAL OVERDOSE [None]
  - DRUG ADMINISTRATION ERROR [None]
